FAERS Safety Report 4782370-8 (Version None)
Quarter: 2005Q3

REPORT INFORMATION
  Report Type: 
  Country: None (occurrence: None)
  Receive Date: 20050914
  Receipt Date: 20050706
  Transmission Date: 20060218
  Serious: Yes (Other)
  Sender: FDA-Public Use
  Company Number: 163-20785-05070141

PATIENT
  Sex: 0

DRUGS (2)
  1. THALOMID [Suspect]
     Indication: SMALL INTESTINE CARCINOMA
     Dosage: 400MG ON DAYS 15 THROUGH 28 IN CYCLE 1, DAILY, ORAL; SEE IMAGE
     Route: 048
     Dates: start: 20031231
  2. CPT-11 (IRINOTECAN) (UNKNOWN) [Suspect]
     Indication: SMALL INTESTINE CARCINOMA
     Dosage: CYCLE 1 (6 WEEKS) 350MG/M2, ON DAYS 1-22 OVER 90 MINUTES, DAILY, INTRAVENOUS; SEE IMAGE
     Route: 042
     Dates: start: 20031216

REACTIONS (6)
  - ALANINE AMINOTRANSFERASE INCREASED [None]
  - ASPARTATE AMINOTRANSFERASE INCREASED [None]
  - DEHYDRATION [None]
  - DIARRHOEA [None]
  - HYPOKALAEMIA [None]
  - NEUTROPHIL COUNT DECREASED [None]
